FAERS Safety Report 8171459-1 (Version None)
Quarter: 2012Q1

REPORT INFORMATION
  Report Type: 
  Country: None (occurrence: None)
  Receive Date: 20120104
  Receipt Date: 20111205
  Transmission Date: 20120608
  Serious: No
  Sender: FDA-Public Use
  Company Number: 2011HGS-002910

PATIENT
  Age: 59 Year
  Sex: Male
  Weight: 108.8633 kg

DRUGS (11)
  1. ACTOS [Concomitant]
  2. LIFLUNOMIDE (LEFLUNOMIDE) (LEFLUNOMIDE) [Concomitant]
  3. LOSARTAN (LOSARTAN) (LOSARTAN) [Concomitant]
  4. ASPIRIN [Concomitant]
  5. SIMBASTATIN(SIMVASTATIN) (SIMVASTATIN) [Concomitant]
  6. ZOLPIDEM [Concomitant]
  7. PREDNISONE [Concomitant]
  8. LANTUS INSULIN(INSULIN GLARGINE)(INSULIN GLARGINE) [Concomitant]
  9. XALATAN [Concomitant]
  10. BENLYSTA [Suspect]
     Indication: SYSTEMIC LUPUS ERYTHEMATOSUS
     Dosage: 1 IN 28 D, INTRAVENOUS DRIP
     Route: 041
     Dates: start: 20111017, end: 20111017
  11. FUROSEMIDE [Concomitant]

REACTIONS (5)
  - LIP SWELLING [None]
  - SWOLLEN TONGUE [None]
  - PHARYNGEAL OEDEMA [None]
  - NASAL CONGESTION [None]
  - OEDEMA PERIPHERAL [None]
